FAERS Safety Report 5287984-7 (Version None)
Quarter: 2007Q2

REPORT INFORMATION
  Report Type: 
  Country: None (occurrence: None)
  Receive Date: 20070405
  Receipt Date: 20070329
  Transmission Date: 20071010
  Serious: Yes (Other)
  Sender: FDA-Public Use
  Company Number: TW-JNJFOC-20070307087

PATIENT
  Sex: Female

DRUGS (2)
  1. DECARIS [Suspect]
     Indication: IMMUNE ENHANCEMENT THERAPY
     Route: 065
  2. MELOXICAM [Concomitant]
     Route: 065

REACTIONS (1)
  - ALOPECIA [None]
